FAERS Safety Report 22074264 (Version 2)
Quarter: 2023Q1

REPORT INFORMATION
  Report Type: Spontaneous
  Country: US (occurrence: US)
  Receive Date: 20230308
  Receipt Date: 20230315
  Transmission Date: 20230418
  Serious: Yes (Other)
  Sender: FDA-Public Use
  Company Number: US-MLMSERVICE-20230227-4119185-1

PATIENT
  Age: 30 Year
  Sex: Male

DRUGS (4)
  1. MIDAZOLAM [Suspect]
     Active Substance: MIDAZOLAM
     Dosage: UNK
  2. PROPOFOL [Suspect]
     Active Substance: PROPOFOL
     Dosage: UNK
  3. KETAMINE HYDROCHLORIDE [Suspect]
     Active Substance: KETAMINE HYDROCHLORIDE
     Dosage: UNK
  4. PENTOBARBITAL [Suspect]
     Active Substance: PENTOBARBITAL
     Dosage: UNK

REACTIONS (1)
  - Ileus [Unknown]
